FAERS Safety Report 7007181-4 (Version None)
Quarter: 2010Q3

REPORT INFORMATION
  Report Type: 
  Country: None (occurrence: None)
  Receive Date: 20100920
  Receipt Date: 20100909
  Transmission Date: 20110219
  Serious: Yes (Hospitalization)
  Sender: FDA-Public Use
  Company Number: 018546

PATIENT
  Sex: Male
  Weight: 80.7 kg

DRUGS (1)
  1. KEPPRA [Suspect]
     Indication: CONVULSION
     Dosage: (1000 MG BID ORAL)
     Route: 048
     Dates: end: 20100101

REACTIONS (1)
  - TREATMENT NONCOMPLIANCE [None]
